FAERS Safety Report 22083466 (Version 1)
Quarter: 2023Q1

REPORT INFORMATION
  Report Type: Spontaneous
  Country: JP (occurrence: JP)
  Receive Date: 20230310
  Receipt Date: 20230310
  Transmission Date: 20230418
  Serious: Yes (Hospitalization)
  Sender: FDA-Public Use
  Company Number: Unknown

PATIENT
  Sex: Female

DRUGS (5)
  1. CELECOXIB [Suspect]
     Active Substance: CELECOXIB
     Indication: Musculoskeletal pain
     Route: 065
  2. ESCITALOPRAM [Suspect]
     Active Substance: ESCITALOPRAM OXALATE
     Indication: Major depression
     Route: 065
  3. TRAZODONE [Suspect]
     Active Substance: TRAZODONE HYDROCHLORIDE
     Indication: Major depression
     Route: 065
  4. LOXOPROFEN [Concomitant]
     Active Substance: LOXOPROFEN
     Indication: Spondylolisthesis
     Route: 065
  5. CELECOXIB [Suspect]
     Active Substance: CELECOXIB
     Indication: Pain in extremity
     Route: 065

REACTIONS (3)
  - Drug interaction [Recovered/Resolved]
  - Feeling jittery [Recovered/Resolved]
  - Anxiety [Recovered/Resolved]
